FAERS Safety Report 11728877 (Version 1)
Quarter: 2015Q4

REPORT INFORMATION
  Report Type: Spontaneous
  Country: US (occurrence: US)
  Receive Date: 20151112
  Receipt Date: 20151112
  Transmission Date: 20160304
  Serious: Yes (Hospitalization)
  Sender: FDA-Public Use
  Company Number: US-009507513-1510USA013747

PATIENT
  Age: 70 Year
  Sex: Female

DRUGS (28)
  1. PAMIDRONATE DISODIUM. [Suspect]
     Active Substance: PAMIDRONATE DISODIUM
     Route: 042
  2. ALPRAZOLAM. [Suspect]
     Active Substance: ALPRAZOLAM
  3. HEPARIN SODIUM. [Suspect]
     Active Substance: HEPARIN SODIUM
     Dosage: UNK
  4. ACETAMINOPHEN. [Suspect]
     Active Substance: ACETAMINOPHEN
     Dosage: UNK
  5. CASPOFUNGIN ACETATE [Suspect]
     Active Substance: CASPOFUNGIN ACETATE
  6. THALIDOMIDE [Suspect]
     Active Substance: THALIDOMIDE
  7. TOBRAMYCIN. [Suspect]
     Active Substance: TOBRAMYCIN
  8. DAPTOMYCIN. [Suspect]
     Active Substance: DAPTOMYCIN
  9. FLUCONAZOLE. [Suspect]
     Active Substance: FLUCONAZOLE
     Dosage: UNK
     Route: 048
  10. MEROPENEM. [Suspect]
     Active Substance: MEROPENEM
     Route: 042
  11. MELOXICAM. [Suspect]
     Active Substance: MELOXICAM
     Dosage: UNK
  12. NEUPOGEN [Suspect]
     Active Substance: FILGRASTIM
  13. DIPHENHYDRAMINE. [Suspect]
     Active Substance: DIPHENHYDRAMINE
  14. HYDROCODONE [Suspect]
     Active Substance: HYDROCODONE
     Dosage: UNK
  15. NALOXONE HYDROCHLORIDE. [Suspect]
     Active Substance: NALOXONE HYDROCHLORIDE
     Dosage: UNK
  16. AMIODARONE HYDROCHLORIDE. [Suspect]
     Active Substance: AMIODARONE HYDROCHLORIDE
     Dosage: UNK
  17. MORPHINE SULFATE. [Suspect]
     Active Substance: MORPHINE SULFATE
     Dosage: UNK
  18. POLYETHYLENE GLYCOL 3350. [Suspect]
     Active Substance: POLYETHYLENE GLYCOL 3350
     Indication: PRODUCT USED FOR UNKNOWN INDICATION
     Dosage: UNK
  19. LIDOCAINE. [Suspect]
     Active Substance: LIDOCAINE
     Dosage: UNK
     Route: 062
  20. TESTOSTERONE ENANTHATE. [Suspect]
     Active Substance: TESTOSTERONE ENANTHATE
  21. CEFEPIME [Suspect]
     Active Substance: CEFEPIME HYDROCHLORIDE
     Route: 042
  22. VANCOMYCIN HYDROCHLORIDE. [Suspect]
     Active Substance: VANCOMYCIN HYDROCHLORIDE
     Route: 042
  23. PANTOPRAZOLE SODIUM. [Suspect]
     Active Substance: PANTOPRAZOLE SODIUM
  24. ZOLPIDEM TARTRATE. [Suspect]
     Active Substance: ZOLPIDEM TARTRATE
     Dosage: UNK
  25. DEXAMETHASONE. [Suspect]
     Active Substance: DEXAMETHASONE
  26. OMEPRAZOLE. [Suspect]
     Active Substance: OMEPRAZOLE
     Dosage: UNK
  27. PROMETHAZINE [Suspect]
     Active Substance: PROMETHAZINE\PROMETHAZINE HYDROCHLORIDE
     Dosage: UNK
  28. RANITIDINE HYDROCHLORIDE. [Suspect]
     Active Substance: RANITIDINE HYDROCHLORIDE

REACTIONS (10)
  - Blood culture positive [Unknown]
  - Oral candidiasis [Unknown]
  - Unresponsive to stimuli [Unknown]
  - Pseudomonas infection [Unknown]
  - Acute generalised exanthematous pustulosis [Unknown]
  - Atrial fibrillation [Unknown]
  - Haemoglobin decreased [Unknown]
  - Streptococcal infection [Unknown]
  - Febrile neutropenia [Unknown]
  - Haematocrit decreased [Unknown]
